FAERS Safety Report 9681712 (Version 6)
Quarter: 2014Q3

REPORT INFORMATION
  Report Type: Spontaneous
  Country: US (occurrence: US)
  Receive Date: 20131111
  Receipt Date: 20140916
  Transmission Date: 20150326
  Serious: Yes (Hospitalization)
  Sender: FDA-Public Use
  Company Number: US-GLAXOSMITHKLINE-A1048455A

PATIENT
  Sex: Female

DRUGS (17)
  1. METHIMAZOLE. [Concomitant]
     Active Substance: METHIMAZOLE
  2. CALCIUM [Concomitant]
     Active Substance: CALCIUM
  3. LUMIGAN [Concomitant]
     Active Substance: BIMATOPROST
  4. VITAMIN SUPPLEMENTS [Concomitant]
  5. ALBUTEROL. [Concomitant]
     Active Substance: ALBUTEROL
  6. ADVAIR HFA [Suspect]
     Active Substance: FLUTICASONE PROPIONATE\SALMETEROL XINAFOATE
     Indication: CHRONIC OBSTRUCTIVE PULMONARY DISEASE
     Dosage: 1PUFF TWICE PER DAY
     Route: 055
     Dates: start: 2003
  7. PRAVASTATIN [Concomitant]
     Active Substance: PRAVASTATIN\PRAVASTATIN SODIUM
  8. VITAMIN D [Concomitant]
     Active Substance: CHOLECALCIFEROL
  9. PREDNISONE. [Concomitant]
     Active Substance: PREDNISONE
  10. MONTELUKAST SODIUM. [Concomitant]
     Active Substance: MONTELUKAST SODIUM
  11. DIOVAN [Concomitant]
     Active Substance: VALSARTAN
  12. FISH OIL [Concomitant]
     Active Substance: FISH OIL
  13. ANTIBIOTICS [Concomitant]
     Active Substance: UNSPECIFIED INGREDIENT
  14. OXYGEN. [Concomitant]
     Active Substance: OXYGEN
  15. VITAMIN B [Concomitant]
     Active Substance: VITAMIN B
  16. IPRATROPIUM BROMIDE + SALBUTAMOL [Concomitant]
     Active Substance: ALBUTEROL\IPRATROPIUM BROMIDE
  17. COMBIVENT [Concomitant]
     Active Substance: ALBUTEROL SULFATE\IPRATROPIUM BROMIDE

REACTIONS (13)
  - Intestinal resection [Recovered/Resolved]
  - Cataract operation [Recovered/Resolved]
  - Pulmonary fibrosis [Not Recovered/Not Resolved]
  - Glaucoma [Unknown]
  - Staphylococcal infection [Recovered/Resolved]
  - Chronic obstructive pulmonary disease [Not Recovered/Not Resolved]
  - Respiratory tract infection [Unknown]
  - Hernia repair [Recovered/Resolved]
  - Back pain [Unknown]
  - Lung infection [Unknown]
  - Dyspnoea [Unknown]
  - Malaise [Not Recovered/Not Resolved]
  - Contusion [Unknown]

NARRATIVE: CASE EVENT DATE: 2004
